FAERS Safety Report 8195925-8 (Version None)
Quarter: 2012Q1

REPORT INFORMATION
  Report Type: 
  Country: None (occurrence: None)
  Receive Date: 20120308
  Receipt Date: 20120224
  Transmission Date: 20120608
  Serious: Yes (Hospitalization)
  Sender: FDA-Public Use
  Company Number: US-MYLANLABS-2012S1004391

PATIENT
  Age: 58 Year
  Sex: Male

DRUGS (3)
  1. RISPERIDONE [Suspect]
     Indication: SCHIZOPHRENIA
     Dosage: 5 MG/DAY
     Route: 065
  2. METHADON HCL TAB [Concomitant]
     Indication: SCHIZOPHRENIA
     Route: 065
  3. CLONAZEPAM [Concomitant]
     Indication: SCHIZOPHRENIA
     Dosage: 4MG IN THE EVENING
     Route: 065

REACTIONS (4)
  - DYSPHAGIA [None]
  - HYPERPROLACTINAEMIA [None]
  - GYNAECOMASTIA [None]
  - BULBAR PALSY [None]
